FAERS Safety Report 17555654 (Version 1)
Quarter: 2020Q1

REPORT INFORMATION
  Report Type: Report from Study
  Country: US (occurrence: US)
  Receive Date: 20200318
  Receipt Date: 20200318
  Transmission Date: 20200409
  Serious: Yes (Other)
  Sender: FDA-Public Use
  Company Number: US-PFIZER INC-2020114615

PATIENT

DRUGS (2)
  1. RITUXIMAB. [Concomitant]
     Active Substance: RITUXIMAB
     Indication: FACTOR VIII DEFICIENCY
     Dosage: 375 MG/M2, UNK (FOUR WEEKLY DOSES)
  2. SIROLIMUS. [Suspect]
     Active Substance: SIROLIMUS
     Indication: FACTOR VIII DEFICIENCY
     Dosage: UNK (TARGET TROUGH VALUES OF 5-15 NG/ML)

REACTIONS (1)
  - Vasculitis gastrointestinal [Recovered/Resolved]
